FAERS Safety Report 19964674 (Version 1)
Quarter: 2021Q4

REPORT INFORMATION
  Report Type: Spontaneous
  Country: US (occurrence: US)
  Receive Date: 20211018
  Receipt Date: 20211018
  Transmission Date: 20220303
  Serious: Yes (Hospitalization, Other)
  Sender: FDA-Public Use
  Company Number: US-HIKMA PHARMACEUTICALS-US-H14001-21-04408

PATIENT
  Age: 51 Year
  Sex: Female

DRUGS (3)
  1. PREDNISONE [Suspect]
     Active Substance: PREDNISONE
     Indication: Uveitis
     Dosage: UNKNOWN
     Route: 065
  2. METHOTREXATE [Suspect]
     Active Substance: METHOTREXATE
     Indication: Uveitis
     Dosage: UNKNOWN
     Route: 048
  3. METHYLPREDNISOLONE [Suspect]
     Active Substance: METHYLPREDNISOLONE
     Indication: Demyelination
     Dosage: UNKNOWN
     Route: 065

REACTIONS (10)
  - Nausea [Unknown]
  - Vomiting [Unknown]
  - Fatigue [Unknown]
  - General physical health deterioration [Unknown]
  - Depression [Unknown]
  - Hypersomnia [Recovering/Resolving]
  - Ataxia [Recovering/Resolving]
  - Somnolence [Recovering/Resolving]
  - Quadriparesis [Recovering/Resolving]
  - Altered state of consciousness [Recovering/Resolving]
